FAERS Safety Report 11751955 (Version 2)
Quarter: 2015Q4

REPORT INFORMATION
  Report Type: Spontaneous
  Country: US (occurrence: US)
  Receive Date: 20151118
  Receipt Date: 20151218
  Transmission Date: 20160304
  Serious: Yes (Hospitalization, Other)
  Sender: FDA-Public Use
  Company Number: US-ASTRAZENECA-2015SF09821

PATIENT
  Age: 875 Month
  Sex: Male
  Weight: 68.9 kg

DRUGS (5)
  1. SYMBICORT [Suspect]
     Active Substance: BUDESONIDE\FORMOTEROL FUMARATE DIHYDRATE
     Indication: CHRONIC OBSTRUCTIVE PULMONARY DISEASE
     Dosage: 80/4.5 MCG, TWO INHALATIONS IN THE MORNING
     Route: 055
     Dates: start: 201508
  2. NOVALOG [Concomitant]
     Indication: DIABETES MELLITUS
     Dosage: BEFORE MEALS
  3. SYMBICORT [Suspect]
     Active Substance: BUDESONIDE\FORMOTEROL FUMARATE DIHYDRATE
     Indication: CHRONIC OBSTRUCTIVE PULMONARY DISEASE
     Dosage: 80/4.5 MCG, TWO INHALATIONS IN THE MORNING
     Route: 055
     Dates: start: 2005
  4. LANTUS [Concomitant]
     Active Substance: INSULIN GLARGINE
     Indication: DIABETES MELLITUS
  5. SYNTHROID [Concomitant]
     Active Substance: LEVOTHYROXINE SODIUM

REACTIONS (6)
  - Body height decreased [Unknown]
  - Accident [Unknown]
  - Drug dose omission [Unknown]
  - Intentional product misuse [Unknown]
  - Product quality issue [Unknown]
  - Neck injury [Unknown]

NARRATIVE: CASE EVENT DATE: 201506
